FAERS Safety Report 21995556 (Version 1)
Quarter: 2023Q1

REPORT INFORMATION
  Report Type: Spontaneous
  Country: US (occurrence: None)
  Receive Date: 20230214
  Receipt Date: 20230214
  Transmission Date: 20230418
  Serious: Yes (Other)
  Sender: FDA-Public Use
  Company Number: None

PATIENT
  Age: 95 Year
  Sex: Male
  Weight: 53.14 kg

DRUGS (2)
  1. OLANZAPINE [Suspect]
     Active Substance: OLANZAPINE
     Indication: Agitation
     Dosage: FREQUENCY : AS NEEDED;?
     Route: 048
  2. HALOPERIDOL [Concomitant]
     Active Substance: HALOPERIDOL

REACTIONS (11)
  - Dysarthria [None]
  - Dysphagia [None]
  - Balance disorder [None]
  - Mental status changes [None]
  - Vital functions abnormal [None]
  - Asthenia [None]
  - Pallor [None]
  - Oxygen saturation decreased [None]
  - Depressed level of consciousness [None]
  - Hyporesponsive to stimuli [None]
  - Dehydration [None]

NARRATIVE: CASE EVENT DATE: 20221216
